FAERS Safety Report 10030928 (Version 2)
Quarter: 2014Q1

REPORT INFORMATION
  Report Type: Spontaneous
  Country: US (occurrence: US)
  Receive Date: 20140323
  Receipt Date: 20140323
  Transmission Date: 20141002
  Serious: Yes (Disabling)
  Sender: FDA-Public Use
  Company Number: US-GE HEALTHCARE MEDICAL DIAGNOSTICS-OSCN-PR-0712S-0492

PATIENT
  Age: 50 Year
  Sex: Female

DRUGS (5)
  1. OMNISCAN [Suspect]
     Indication: HEADACHE
     Route: 042
     Dates: start: 20050603, end: 20050603
  2. OMNISCAN [Suspect]
     Indication: BACK PAIN
     Route: 042
     Dates: start: 20051119, end: 20051119
  3. OMNISCAN [Suspect]
     Indication: BACK PAIN
     Route: 042
     Dates: start: 20051220, end: 20051220
  4. OMNISCAN [Suspect]
     Indication: LOSS OF CONTROL OF LEGS
     Route: 042
     Dates: start: 20061010, end: 20061010
  5. OMNISCAN [Suspect]
     Indication: BACK PAIN
     Route: 042
     Dates: start: 20061024, end: 20061024

REACTIONS (1)
  - Nephrogenic systemic fibrosis [Not Recovered/Not Resolved]
